FAERS Safety Report 10142889 (Version 2)
Quarter: 2014Q2

REPORT INFORMATION
  Report Type: Spontaneous
  Country: IN (occurrence: IN)
  Receive Date: 20140430
  Receipt Date: 20140430
  Transmission Date: 20141212
  Serious: Yes (Other)
  Sender: FDA-Public Use
  Company Number: IN-RANBAXY-2014RR-80198

PATIENT
  Age: 28 Year
  Sex: Male

DRUGS (17)
  1. OLANZAPINE [Suspect]
     Indication: SCHIZOPHRENIA
     Dosage: 15 MG
     Route: 065
  2. VALPROIC ACID [Concomitant]
     Indication: SCHIZOPHRENIA
     Dosage: 1000 MG
     Route: 065
  3. OLANZAPINE [Suspect]
     Indication: SCHIZOPHRENIA
     Dosage: 20 MG
     Route: 065
  4. ARIPIPRAZOLE [Suspect]
     Indication: SCHIZOPHRENIA
     Dosage: 5 MG
     Route: 065
  5. ARIPIPRAZOLE [Suspect]
     Dosage: 10 MG
  6. ARIPIPRAZOLE [Suspect]
     Indication: SCHIZOPHRENIA
     Dosage: 15 MG
     Route: 065
  7. OLANZAPINE [Suspect]
     Indication: SCHIZOPHRENIA
     Dosage: 15 MG
     Route: 065
  8. RISPERIDONE [Suspect]
     Indication: SCHIZOPHRENIA
     Dosage: 3 MG
     Route: 065
  9. RISPERIDONE [Suspect]
     Dosage: 8 MG
     Route: 065
  10. RISPERIDONE [Suspect]
     Dosage: 12 MG
     Route: 065
  11. RISPERIDONE [Suspect]
     Dosage: 16 MG
     Route: 065
  12. RISPERIDONE [Suspect]
     Indication: SCHIZOPHRENIA
     Dosage: 20 MG
     Route: 065
  13. TRIHEXYPHENIDYL [Concomitant]
     Indication: PRODUCT USED FOR UNKNOWN INDICATION
     Dosage: 2 MG
     Route: 065
  14. TRIHEXYPHENIDYL [Concomitant]
     Dosage: 4 MG
     Route: 065
  15. TRIHEXYPHENIDYL [Concomitant]
     Dosage: 6 MG
     Route: 065
  16. TRIHEXYPHENIDYL [Concomitant]
     Dosage: 8 MG
     Route: 065
  17. TRIHEXYPHENIDYL [Concomitant]
     Indication: PRODUCT USED FOR UNKNOWN INDICATION
     Dosage: 10 MG
     Route: 065

REACTIONS (3)
  - Drug effect incomplete [Recovered/Resolved]
  - Weight increased [Unknown]
  - Blood prolactin increased [Unknown]
